FAERS Safety Report 7540332-1 (Version None)
Quarter: 2011Q2

REPORT INFORMATION
  Report Type: 
  Country: None (occurrence: None)
  Receive Date: 20110610
  Receipt Date: 20020409
  Transmission Date: 20111010
  Serious: Yes (Death)
  Sender: FDA-Public Use
  Company Number: PHBS2002ES04535

PATIENT
  Sex: Female

DRUGS (1)
  1. AREDIA [Suspect]
     Indication: METASTASES TO BONE
     Dosage: 90 MG/DAY
     Route: 042
     Dates: start: 20010412, end: 20020306

REACTIONS (2)
  - MENINGOCOCCAL INFECTION [None]
  - CARDIO-RESPIRATORY ARREST [None]
